FAERS Safety Report 9382833 (Version 5)
Quarter: 2013Q3

REPORT INFORMATION
  Report Type: Spontaneous
  Country: US (occurrence: US)
  Receive Date: 20130703
  Receipt Date: 20130909
  Transmission Date: 20140515
  Serious: Yes (Hospitalization, Other)
  Sender: FDA-Public Use
  Company Number: US-GILEAD-2013-0076931

PATIENT
  Age: 74 Year
  Sex: Female

DRUGS (19)
  1. LETAIRIS [Suspect]
     Indication: PULMONARY HYPERTENSION
     Dosage: 5 MG, QD
     Route: 048
     Dates: start: 20101008
  2. LETAIRIS [Suspect]
     Indication: SCLERODERMA
     Dosage: 5 MG, QD
     Route: 048
     Dates: start: 20120208
  3. LETAIRIS [Suspect]
     Dates: start: 20111020
  4. VENTAVIS [Suspect]
     Indication: PULMONARY HYPERTENSION
     Dates: start: 20121114
  5. ASPIRIN [Concomitant]
  6. MAGNESIUM [Concomitant]
  7. NASONEX [Concomitant]
  8. ATENOLOL [Concomitant]
  9. SIMVASTATIN [Concomitant]
  10. PREVACID [Concomitant]
  11. CELEXA                             /00582602/ [Concomitant]
  12. KLONOPIN [Concomitant]
  13. EVISTA [Concomitant]
  14. PREDNISONE [Concomitant]
  15. SYNTHROID [Concomitant]
  16. OS-CAL D [Concomitant]
  17. NORCO [Concomitant]
  18. REVATIO [Concomitant]
  19. SILDENAFIL [Concomitant]
     Indication: PULMONARY HYPERTENSION

REACTIONS (4)
  - Cardiac failure congestive [Recovered/Resolved]
  - Foot operation [Recovered/Resolved]
  - Foot operation [Recovered/Resolved]
  - Cardiac failure congestive [Recovered/Resolved]
